FAERS Safety Report 17143885 (Version 1)
Quarter: 2019Q4

REPORT INFORMATION
  Report Type: Spontaneous
  Country: GB (occurrence: GB)
  Receive Date: 20191212
  Receipt Date: 20191212
  Transmission Date: 20200122
  Serious: Yes (Other)
  Sender: FDA-Public Use
  Company Number: PHHY2019GB212995

PATIENT
  Age: 44 Year
  Sex: Male
  Weight: 54 kg

DRUGS (4)
  1. DEXAMETHASONE. [Suspect]
     Active Substance: DEXAMETHASONE
     Indication: STEROID THERAPY
     Dosage: 16 MILLIGRAM DAILY;
     Route: 065
  2. DABRAFENIB [Suspect]
     Active Substance: DABRAFENIB
     Indication: MALIGNANT MELANOMA
     Dosage: UNK
     Route: 065
  3. SERTRALINE [Suspect]
     Active Substance: SERTRALINE HYDROCHLORIDE
     Indication: POSTERIOR FOSSA SYNDROME
     Dosage: 50 MILLIGRAM DAILY;
     Route: 065
  4. TRAMETINIB [Concomitant]
     Active Substance: TRAMETINIB
     Indication: METASTATIC MALIGNANT MELANOMA
     Route: 065

REACTIONS (8)
  - Headache [Recovering/Resolving]
  - Agitation [Unknown]
  - Sleep disorder [Unknown]
  - Melanoma recurrent [Not Recovered/Not Resolved]
  - Somnolence [Recovering/Resolving]
  - Nausea [Unknown]
  - Drug ineffective [Unknown]
  - Psychomotor hyperactivity [Unknown]
